FAERS Safety Report 6233119-3 (Version None)
Quarter: 2009Q2

REPORT INFORMATION
  Report Type: 
  Country: None (occurrence: None)
  Receive Date: 20090617
  Receipt Date: 20090424
  Transmission Date: 20091009
  Serious: Yes (Hospitalization)
  Sender: FDA-Public Use
  Company Number: JP-PFIZER INC-2009188407

PATIENT
  Age: 73 Year

DRUGS (7)
  1. IRINOTECAN HCL [Suspect]
     Indication: COLON CANCER
     Dosage: 140 MG, 1 IN 2 WEEKS
     Route: 042
     Dates: start: 20090127, end: 20090210
  2. IRINOTECAN HCL [Suspect]
     Dosage: 140 MG/M2, 1 IN 2 WEEKS
     Route: 042
  3. CETUXIMAB [Suspect]
     Indication: COLON CANCER
     Dosage: 400 MG/M2, ONCE
     Route: 042
     Dates: start: 20090127, end: 20090127
  4. CETUXIMAB [Suspect]
     Dosage: 250 MG/M2, 1 IN 1 WEEK
     Route: 042
  5. CETUXIMAB [Suspect]
     Dosage: 250 MG/M2, 1 IN 1 WEEK
     Route: 042
  6. POLARAMINE [Concomitant]
     Indication: PREMEDICATION
     Dosage: 5 MG, BEFORE EVERY CETUXIMAB INFUSION
     Route: 042
     Dates: start: 20090127, end: 20090210
  7. DECADRON [Concomitant]
     Indication: PREMEDICATION
     Dosage: 10 MG, BEFORE EVERY CETUXIMAB INFUSION
     Route: 042
     Dates: start: 20090127, end: 20090210

REACTIONS (1)
  - ASTHMA [None]
